FAERS Safety Report 12609270 (Version 1)
Quarter: 2016Q3

REPORT INFORMATION
  Report Type: Spontaneous
  Country: US (occurrence: US)
  Receive Date: 20160801
  Receipt Date: 20160801
  Transmission Date: 20161109
  Serious: Yes (Other)
  Sender: FDA-Public Use
  Company Number: US-AMGEN-USASP2016096227

PATIENT
  Age: 84 Year
  Sex: Female

DRUGS (2)
  1. ENBREL [Suspect]
     Active Substance: ETANERCEPT
     Indication: RHEUMATOID ARTHRITIS
     Dosage: ONE SHOT OF ENBREL
     Route: 065
     Dates: start: 2011
  2. ENBREL [Suspect]
     Active Substance: ETANERCEPT
     Dosage: 50 MG, QWK
     Route: 065

REACTIONS (20)
  - Local swelling [Unknown]
  - Drug dose omission [Unknown]
  - Delayed recovery from anaesthesia [Unknown]
  - Finger deformity [Unknown]
  - Heart valve incompetence [Unknown]
  - Drug ineffective [Unknown]
  - Rheumatoid arthritis [Unknown]
  - Hand deformity [Unknown]
  - Overdose [Unknown]
  - Impaired driving ability [Unknown]
  - Peripheral swelling [Unknown]
  - Injection site pain [Unknown]
  - Mobility decreased [Unknown]
  - Confusional state [Unknown]
  - Large intestine polyp [Recovered/Resolved]
  - Bone disorder [Unknown]
  - Blood pressure abnormal [Unknown]
  - Memory impairment [Unknown]
  - Urinary incontinence [Unknown]
  - Injection site haemorrhage [Unknown]

NARRATIVE: CASE EVENT DATE: 2012
